FAERS Safety Report 9894441 (Version 1)
Quarter: 2014Q1

REPORT INFORMATION
  Report Type: Spontaneous
  Country: US (occurrence: US)
  Receive Date: 20140213
  Receipt Date: 20140213
  Transmission Date: 20141002
  Serious: Yes (Other)
  Sender: FDA-Public Use
  Company Number: US-BRISTOL-MYERS SQUIBB COMPANY-20133179

PATIENT
  Age: 69 Year
  Sex: Female

DRUGS (10)
  1. BYDUREON [Suspect]
  2. METFORMIN HCL [Concomitant]
     Dosage: 500MG FIVE PILLS DAILY (2 QAM, 1 AT LUNCH, 2 QPM)
  3. RAMIPRIL [Concomitant]
  4. DILTIAZEM CD [Concomitant]
     Dosage: CAPSULE
  5. ALLEGRA [Concomitant]
  6. CALTRATE + D [Concomitant]
  7. ASPIRIN [Concomitant]
  8. MULTIVITAMIN [Concomitant]
  9. THERAGRAN-M [Concomitant]
  10. TRIAMCINOLONE [Concomitant]
     Dosage: TRIAMCINOLONE SPRAY QD TO BID

REACTIONS (3)
  - Cholelithiasis [Recovered/Resolved]
  - Injection site nodule [Unknown]
  - Muscle spasms [Unknown]
